FAERS Safety Report 6924333-X (Version None)
Quarter: 2010Q3

REPORT INFORMATION
  Report Type: 
  Country: None (occurrence: None)
  Receive Date: 20100811
  Receipt Date: 20100811
  Transmission Date: 20110219
  Serious: Yes (Other)
  Sender: FDA-Public Use
  Company Number: None

PATIENT
  Age: 36 Year
  Sex: Female
  Weight: 90.7194 kg

DRUGS (2)
  1. LORAZEPAM [Suspect]
     Indication: ANXIETY
     Dosage: ONE WHEN NEEDED
     Dates: start: 20100608, end: 20100803
  2. LORAZEPAM [Suspect]
     Indication: INSOMNIA
     Dosage: ONE WHEN NEEDED
     Dates: start: 20100608, end: 20100803

REACTIONS (9)
  - ANXIETY [None]
  - ASTHENIA [None]
  - CHOKING [None]
  - DIARRHOEA [None]
  - FATIGUE [None]
  - HEADACHE [None]
  - HEART RATE DECREASED [None]
  - POLLAKIURIA [None]
  - SLEEP APNOEA SYNDROME [None]
